FAERS Safety Report 10380273 (Version 1)
Quarter: 2014Q1

REPORT INFORMATION
  Report Type: Spontaneous
  Country: US (occurrence: None)
  Receive Date: 20140306
  Receipt Date: 20140306
  Transmission Date: 20141002
  Serious: Yes (Other)
  Sender: FDA-Public Use
  Company Number: 163-21880-13074363

PATIENT
  Age: 58 Year
  Sex: Female

DRUGS (13)
  1. REVLIMID (LENALIDOMIDE) (15 MILLIGRAM, CAPSULES) [Suspect]
     Indication: PLASMA CELL MYELOMA
     Dosage: 15 MG, 14 IN 21 D, PO
     Route: 048
     Dates: start: 201210
  2. VITAMIN C (ASCORBIC ACID) [Concomitant]
  3. ASPIRIN ADULT LOW STRENGTH (ACETYLSALICYLIC ACID) [Concomitant]
  4. CALCIUM 500 +D (CALCIUM D3 ^STADA^) [Concomitant]
  5. OCUVITE [Concomitant]
  6. VELCADE (BORTEZOMIB) [Concomitant]
  7. DEXAMETHASONE [Concomitant]
  8. MELATONIN [Concomitant]
  9. D3 (COLECALCIFEROL) [Concomitant]
  10. CETIRIZINE HCL (CETIRIZINE HYDROCHLORIDE) [Concomitant]
  11. GLUCOSAMINE SULFATE [Concomitant]
  12. FISH OIL [Concomitant]
  13. CENTRUM [Concomitant]

REACTIONS (1)
  - Glaucoma [None]
